FAERS Safety Report 7609188-2 (Version None)
Quarter: 2011Q3

REPORT INFORMATION
  Report Type: 
  Country: None (occurrence: None)
  Receive Date: 20110713
  Receipt Date: 20110713
  Transmission Date: 20111222
  Serious: Yes (Life-Threatening, Other)
  Sender: FDA-Public Use
  Company Number: None

PATIENT
  Age: 53 Year
  Sex: Male
  Weight: 90.7194 kg

DRUGS (2)
  1. HUMIRA [Suspect]
     Indication: RHEUMATOID ARTHRITIS
     Dosage: 40 Q14 DAYS SQ
     Route: 058
     Dates: start: 20040822, end: 20110610
  2. METHOTREXATE [Suspect]
     Dosage: 10 Q7-14 DAYS PO
     Route: 048
     Dates: start: 20030612, end: 20110610

REACTIONS (1)
  - B-CELL LYMPHOMA [None]
